FAERS Safety Report 23609371 (Version 1)
Quarter: 2024Q1

REPORT INFORMATION
  Report Type: Spontaneous
  Country: CN (occurrence: None)
  Receive Date: 20240308
  Receipt Date: 20240308
  Transmission Date: 20240410
  Serious: Yes (Other)
  Sender: FDA-Public Use
  Company Number: CN-ROCHE-3522367

PATIENT
  Age: 62 Year
  Sex: Female
  Weight: 48 kg

DRUGS (1)
  1. KADCYLA [Suspect]
     Active Substance: ADO-TRASTUZUMAB EMTANSINE
     Indication: Invasive breast carcinoma
     Dosage: 2023-9-15, 2023-10-19, 2023-11-13, 2023-12-08, 2024-01-05, 2024-01-26
     Route: 041
     Dates: start: 20230823

REACTIONS (1)
  - Myelosuppression [Recovering/Resolving]
